FAERS Safety Report 6335651-0 (Version None)
Quarter: 2009Q3

REPORT INFORMATION
  Report Type: 
  Country: None (occurrence: None)
  Receive Date: 20090826
  Receipt Date: 20090814
  Transmission Date: 20100115
  Serious: Yes (Other)
  Sender: FDA-Public Use
  Company Number: 2009AP003330

PATIENT
  Age: 67 Year
  Sex: Female

DRUGS (6)
  1. CAPTOPRIL [Suspect]
     Dosage: 6.25 MG;PO;TID
     Route: 048
  2. CARBIDOPA AND LEVODOPA [Concomitant]
  3. PERGOLIDE MESYLATE [Concomitant]
  4. ENTACAPONE (ENTACAPONE) [Concomitant]
  5. SELEGILINE HCL [Concomitant]
  6. AMANTADINE HCL [Concomitant]

REACTIONS (4)
  - AKINESIA [None]
  - CONDITION AGGRAVATED [None]
  - HYPERTENSION [None]
  - PARKINSON'S DISEASE [None]
